FAERS Safety Report 4919557-7 (Version None)
Quarter: 2006Q1

REPORT INFORMATION
  Report Type: 
  Country: None (occurrence: None)
  Receive Date: 20060222
  Receipt Date: 20051019
  Transmission Date: 20060701
  Serious: Yes (Other)
  Sender: FDA-Public Use
  Company Number: US-MERCK-0510USA08243

PATIENT
  Age: 51 Year
  Sex: Male
  Weight: 136 kg

DRUGS (5)
  1. VIOXX [Suspect]
     Indication: ARTHRITIS
     Route: 048
     Dates: start: 20030301, end: 20030701
  2. IBUPROFEN [Concomitant]
     Route: 065
  3. TYLENOL [Concomitant]
     Route: 065
  4. NAPROXEN SODIUM [Concomitant]
     Route: 065
  5. ALEVE [Concomitant]
     Route: 065

REACTIONS (3)
  - CEREBROVASCULAR ACCIDENT [None]
  - HYPERTENSION [None]
  - INTRACRANIAL ANEURYSM [None]
